FAERS Safety Report 19155171 (Version 3)
Quarter: 2021Q2

REPORT INFORMATION
  Report Type: Spontaneous
  Country: IN (occurrence: IN)
  Receive Date: 20210419
  Receipt Date: 20210525
  Transmission Date: 20210717
  Serious: Yes (Death, Hospitalization, Other)
  Sender: FDA-Public Use
  Company Number: IN-PFIZER INC-2020051737

PATIENT
  Age: 62 Year
  Sex: Female

DRUGS (2)
  1. LETROZOLE. [Concomitant]
     Active Substance: LETROZOLE
     Dosage: 2.5 MG, UNK
  2. PALBACE [Suspect]
     Active Substance: PALBOCICLIB
     Indication: BREAST CANCER METASTATIC
     Dosage: 125 MG, ONCE A DAY, 3 WEEKS OF 4
     Route: 048
     Dates: start: 20181031, end: 20210403

REACTIONS (4)
  - Pallor [Unknown]
  - Renal failure [Fatal]
  - SARS-CoV-2 test positive [Unknown]
  - Haemoglobin decreased [Unknown]
